FAERS Safety Report 11169471 (Version 1)
Quarter: 2015Q2

REPORT INFORMATION
  Report Type: Spontaneous
  Country: FR (occurrence: FR)
  Receive Date: 20150605
  Receipt Date: 20150605
  Transmission Date: 20150821
  Serious: Yes (Hospitalization, Disabling)
  Sender: FDA-Public Use
  Company Number: FR-009507513-1506FRA001236

PATIENT
  Age: 32 Year
  Sex: Male

DRUGS (2)
  1. CETIRIZINE HYDROCHLORIDE. [Suspect]
     Active Substance: CETIRIZINE HYDROCHLORIDE
     Indication: IMMUNE TOLERANCE INDUCTION
     Dosage: UNK
     Route: 048
     Dates: start: 20150410, end: 20150423
  2. GRAZAX [Suspect]
     Active Substance: PHLEUM PRATENSE POLLEN
     Indication: IMMUNE TOLERANCE INDUCTION
     Dosage: 75000 SQ-T;DAILY
     Route: 060
     Dates: start: 20150306, end: 20150423

REACTIONS (2)
  - Hypersensitivity vasculitis [Not Recovered/Not Resolved]
  - Joint effusion [Not Recovered/Not Resolved]

NARRATIVE: CASE EVENT DATE: 20150415
